FAERS Safety Report 13086125 (Version 1)
Quarter: 2017Q1

REPORT INFORMATION
  Report Type: Spontaneous
  Country: IN (occurrence: IN)
  Receive Date: 20170104
  Receipt Date: 20170104
  Transmission Date: 20170428
  Serious: Yes (Hospitalization)
  Sender: FDA-Public Use
  Company Number: PHHY2017IN000475

PATIENT
  Age: 36 Year
  Sex: Female

DRUGS (1)
  1. ELTROMBOPAG [Suspect]
     Active Substance: ELTROMBOPAG
     Indication: IMMUNE THROMBOCYTOPENIC PURPURA
     Dosage: 50 MG, QD
     Route: 048

REACTIONS (7)
  - Hemiparesis [Recovering/Resolving]
  - Speech disorder [Unknown]
  - Status epilepticus [Unknown]
  - Headache [Recovered/Resolved]
  - Transverse sinus thrombosis [Unknown]
  - Superior sagittal sinus thrombosis [Unknown]
  - Haemorrhagic cerebral infarction [Unknown]
